FAERS Safety Report 8221982-6 (Version None)
Quarter: 2012Q1

REPORT INFORMATION
  Report Type: 
  Country: None (occurrence: None)
  Receive Date: 20120320
  Receipt Date: 20120309
  Transmission Date: 20120608
  Serious: Yes (Other)
  Sender: FDA-Public Use
  Company Number: US-US-EMD SERONO, INC.-7067953

PATIENT
  Sex: Male

DRUGS (2)
  1. REBIF [Suspect]
     Indication: MULTIPLE SCLEROSIS
     Route: 058
     Dates: start: 20070306
  2. DEPAKOTE [Suspect]
     Indication: BIPOLAR DISORDER

REACTIONS (3)
  - HEPATOTOXICITY [None]
  - BIPOLAR DISORDER [None]
  - INJECTION SITE REACTION [None]
